FAERS Safety Report 9462750 (Version 3)
Quarter: 2013Q3

REPORT INFORMATION
  Report Type: Spontaneous
  Country: GB (occurrence: None)
  Receive Date: 20130814
  Receipt Date: 20130904
  Transmission Date: 20140515
  Serious: Yes (Other)
  Sender: FDA-Public Use
  Company Number: AUR-APL-2013-06467

PATIENT
  Age: 34 Year
  Sex: Female

DRUGS (1)
  1. LEVETIRACETAM (LEVETIRACETAM) [Suspect]
     Indication: PRODUCT USED FOR UNKNOWN INDICATION
     Dosage: 1000 1 X DAY, ORAL
     Route: 048

REACTIONS (2)
  - Convulsion [None]
  - Exposure during pregnancy [None]
